FAERS Safety Report 5283780-5 (Version None)
Quarter: 2007Q1

REPORT INFORMATION
  Report Type: 
  Country: None (occurrence: None)
  Receive Date: 20061226
  Receipt Date: 20060327
  Transmission Date: 20070707
  Serious: Yes (Hospitalization)
  Sender: FDA-Public Use
  Company Number: 2006S1000067

PATIENT
  Age: 50 Year
  Sex: Female

DRUGS (8)
  1. SORIATANE [Suspect]
     Indication: PUSTULAR PSORIASIS
     Dosage: SEE IMAGE
     Route: 048
     Dates: start: 20051219, end: 20051224
  2. SORIATANE [Suspect]
     Indication: PUSTULAR PSORIASIS
     Dosage: SEE IMAGE
     Route: 048
     Dates: start: 20051224, end: 20051227
  3. SPASFON (SPASFON) [Suspect]
     Indication: DRUG USE FOR UNKNOWN INDICATION
     Dosage: SEE IMAGE
     Route: 048
     Dates: end: 20051229
  4. AUGMENTIN [Suspect]
     Indication: DRUG USE FOR UNKNOWN INDICATION
     Dosage: SEE IMAGE
     Route: 048
     Dates: end: 20051224
  5. AUGMENTIN [Suspect]
     Indication: DRUG USE FOR UNKNOWN INDICATION
     Dosage: SEE IMAGE
     Route: 048
     Dates: start: 20051224, end: 20051227
  6. SMECTA /00837601/ (SMECTA /00837601/) [Suspect]
     Indication: DRUG USE FOR UNKNOWN INDICATION
     Dosage: 3 DF; QD; PO
     Route: 048
     Dates: end: 20051229
  7. HYDROCORTISONE [Suspect]
     Indication: DRUG USE FOR UNKNOWN INDICATION
     Dosage: QD; PO
     Route: 048
     Dates: end: 20051229
  8. DAFALGAN (PARACETAMOL) [Suspect]
     Indication: DRUG USE FOR UNKNOWN INDICATION
     Dosage: 3000 MG; QD; PO
     Route: 048
     Dates: end: 20051227

REACTIONS (1)
  - HEPATIC ENZYME INCREASED [None]
